FAERS Safety Report 11548367 (Version 1)
Quarter: 2015Q3

REPORT INFORMATION
  Report Type: Spontaneous
  Country: US (occurrence: US)
  Receive Date: 20150924
  Receipt Date: 20150924
  Transmission Date: 20151125
  Serious: No
  Sender: FDA-Public Use
  Company Number: US-INCYTE CORPORATION-2015IN001326

PATIENT
  Age: 70 Year
  Sex: Female

DRUGS (6)
  1. JAKAFI [Suspect]
     Active Substance: RUXOLITINIB
     Indication: POLYCYTHAEMIA VERA
     Dosage: 10 MG, BID
     Dates: start: 20150327
  2. HYDROXYUREA. [Concomitant]
     Active Substance: HYDROXYUREA
  3. MULTIVITAMIN                       /00097801/ [Concomitant]
     Active Substance: VITAMINS
  4. SYNTHROID [Concomitant]
     Active Substance: LEVOTHYROXINE SODIUM
  5. ATENOLOL. [Concomitant]
     Active Substance: ATENOLOL
  6. LORATADINE. [Concomitant]
     Active Substance: LORATADINE

REACTIONS (4)
  - Therapeutic response unexpected [Unknown]
  - Oral herpes [Unknown]
  - Feeling abnormal [Unknown]
  - Dry mouth [Unknown]

NARRATIVE: CASE EVENT DATE: 20150328
